FAERS Safety Report 18111540 (Version 2)
Quarter: 2020Q4

REPORT INFORMATION
  Report Type: Report from Study
  Country: JP (occurrence: JP)
  Receive Date: 20200805
  Receipt Date: 20201229
  Transmission Date: 20210113
  Serious: Yes (Death, Hospitalization, Other)
  Sender: FDA-Public Use
  Company Number: JP-AMGEN-JPNCT2016074767

PATIENT
  Age: 71 Year
  Sex: Male

DRUGS (35)
  1. DARBEPOETIN ALFA [Suspect]
     Active Substance: DARBEPOETIN ALFA
     Dosage: 240 MICROGRAM, QWK
     Route: 058
     Dates: start: 20150513, end: 20150610
  2. PROMAC D [Concomitant]
     Active Substance: POLAPREZINC
     Indication: GASTRIC ULCER
     Dosage: 150 MILLIGRAM
     Route: 048
  3. MAXIPIME [Concomitant]
     Active Substance: CEFEPIME HYDROCHLORIDE
     Dosage: 4 GRAM
     Route: 065
     Dates: start: 20151221, end: 20151229
  4. PENTAGIN [PENTAZOCINE HYDROCHLORIDE] [Concomitant]
     Dosage: 13 MILLIGRAM
     Route: 065
     Dates: start: 20170207, end: 20170212
  5. TRAMCET [Concomitant]
     Active Substance: ACETAMINOPHEN\TRAMADOL
     Indication: ARTHRALGIA
     Dosage: 1 DOSAGE FORM, PRN
     Route: 048
     Dates: end: 20150601
  6. DAIPHEN [Concomitant]
     Active Substance: SULFAMETHOXAZOLE\TRIMETHOPRIM
     Dosage: 3/7 DF
     Route: 048
     Dates: start: 20151013
  7. LEVOFLOXACIN HEMIHYDRATE [Concomitant]
     Active Substance: LEVOFLOXACIN
     Dosage: 500 MILLIGRAM
     Route: 048
     Dates: start: 20160226, end: 20160427
  8. CLINDAMYCIN [CLINDAMYCIN PHOSPHATE] [Concomitant]
     Dosage: 1200 MILLIGRAM
     Route: 065
     Dates: start: 20170210
  9. DARBEPOETIN ALFA [Suspect]
     Active Substance: DARBEPOETIN ALFA
     Indication: MYELODYSPLASTIC SYNDROME
     Dosage: 120 MICROGRAM, QWK
     Route: 058
     Dates: start: 20150218, end: 20150218
  10. REBAMIPIDE [Concomitant]
     Active Substance: REBAMIPIDE
     Indication: GASTRIC ULCER
     Dosage: 300 MILLIGRAM
     Route: 048
     Dates: end: 20161004
  11. ASTOMIN [DIMEMORFAN PHOSPHATE] [Concomitant]
     Active Substance: DIMEMORFAN PHOSPHATE
     Dosage: 30 MILLIGRAM
     Route: 048
     Dates: start: 20170130, end: 20170205
  12. BROCIN-CODEINE [Concomitant]
     Dosage: 4.5 MILLILITER
     Route: 048
     Dates: start: 20170210
  13. NEORAL [Concomitant]
     Active Substance: CYCLOSPORINE
     Indication: MYELODYSPLASTIC SYNDROME
     Dosage: 200 MILLIGRAM
     Route: 048
     Dates: end: 20150701
  14. MEROPENEM. [Concomitant]
     Active Substance: MEROPENEM
     Dosage: 2 GRAM
     Route: 065
     Dates: start: 20150824, end: 20150904
  15. PANTOSIN [Concomitant]
     Active Substance: PANTETHINE
     Dosage: 1.5 GRAM
     Route: 048
     Dates: start: 20150909
  16. DARBEPOETIN ALFA [Suspect]
     Active Substance: DARBEPOETIN ALFA
     Dosage: 240 MICROGRAM, QWK
     Route: 058
     Dates: start: 20150304, end: 20150501
  17. NEXIUM [Concomitant]
     Active Substance: ESOMEPRAZOLE MAGNESIUM
     Indication: GASTRIC ULCER
     Dosage: 20 MILLIGRAM
     Route: 048
  18. MAXIPIME [Concomitant]
     Active Substance: CEFEPIME HYDROCHLORIDE
     Dosage: 4 GRAM
     Route: 065
     Dates: start: 20150905, end: 20150918
  19. MAGMITT [Concomitant]
     Active Substance: MAGNESIUM OXIDE
     Dosage: 1500 MILLIGRAM
     Route: 048
     Dates: start: 20150909
  20. ALENDRONATE [Concomitant]
     Active Substance: ALENDRONATE SODIUM
     Dosage: 35 MILLIGRAM, QWK
     Route: 048
     Dates: start: 20151225, end: 20170117
  21. CLARITH [Concomitant]
     Active Substance: CLARITHROMYCIN
     Dosage: 400 MILLIGRAM
     Route: 048
     Dates: start: 20160726, end: 20160801
  22. TAZOPIPE [Concomitant]
     Active Substance: PIPERACILLIN SODIUM\TAZOBACTAM SODIUM
     Dosage: 13.5 GRAM
     Route: 065
     Dates: start: 20170211
  23. MAXIPIME [Concomitant]
     Active Substance: CEFEPIME HYDROCHLORIDE
     Dosage: 4 GRAM
     Route: 065
     Dates: start: 20170209, end: 20170212
  24. DARBEPOETIN ALFA [Suspect]
     Active Substance: DARBEPOETIN ALFA
     Dosage: 240 MICROGRAM, QWK
     Route: 058
     Dates: start: 20150624, end: 20161227
  25. MAXIPIME [Concomitant]
     Active Substance: CEFEPIME HYDROCHLORIDE
     Dosage: 4 GRAM
     Route: 065
     Dates: start: 20150819, end: 20150824
  26. MAXIPIME [Concomitant]
     Active Substance: CEFEPIME HYDROCHLORIDE
     Dosage: 4 GRAM
     Route: 065
     Dates: start: 20160201, end: 20160226
  27. MEROPENEM. [Concomitant]
     Active Substance: MEROPENEM
     Dosage: 2 GRAM
     Route: 065
     Dates: start: 20150919, end: 20150925
  28. PREDNISOLONE. [Concomitant]
     Active Substance: PREDNISOLONE
     Indication: MYELODYSPLASTIC SYNDROME
     Dosage: 20 MILLIGRAM
     Route: 048
     Dates: start: 20150909, end: 20160104
  29. PREDNISOLONE. [Concomitant]
     Active Substance: PREDNISOLONE
     Dosage: 4 MILLIGRAM
     Route: 048
     Dates: start: 20160105, end: 20170217
  30. LEVOFLOXACIN HEMIHYDRATE [Concomitant]
     Active Substance: LEVOFLOXACIN
     Indication: PNEUMONIA
     Dosage: 500 MILLIGRAM
     Route: 048
     Dates: start: 20151230, end: 20160201
  31. POLARAMINE [Concomitant]
     Active Substance: DEXCHLORPHENIRAMINE MALEATE
     Dosage: 6 MILLIGRAM
     Route: 048
     Dates: start: 20170130, end: 20170205
  32. DARBEPOETIN ALFA [Suspect]
     Active Substance: DARBEPOETIN ALFA
     Dosage: 240 MICROGRAM, QWK
     Route: 058
     Dates: start: 20170110, end: 20170206
  33. ULCERLMIN [Concomitant]
     Active Substance: SUCRALFATE
     Indication: GASTRIC ULCER
     Dosage: 3 GRAM
     Route: 048
     Dates: end: 20161004
  34. BUP-4 [Concomitant]
     Active Substance: PROPIVERINE
     Dosage: 10 MILLIGRAM
     Route: 048
     Dates: start: 20150916, end: 20151013
  35. TAMIFLU [Concomitant]
     Active Substance: OSELTAMIVIR PHOSPHATE
     Dosage: 150 MILLIGRAM
     Route: 048
     Dates: start: 20170130, end: 20170203

REACTIONS (10)
  - Influenza [Recovered/Resolved]
  - Influenza [Recovered/Resolved]
  - Pyrexia [Recovered/Resolved]
  - Upper respiratory tract inflammation [Recovered/Resolved]
  - Liver abscess [Recovering/Resolving]
  - Pneumonia [Recovered/Resolved]
  - Pneumonia [Recovered/Resolved]
  - Hypertonic bladder [Recovering/Resolving]
  - Transformation to acute myeloid leukaemia [Fatal]
  - Pyrexia [Recovered/Resolved]

NARRATIVE: CASE EVENT DATE: 20150819
